FAERS Safety Report 16354934 (Version 1)
Quarter: 2019Q2

REPORT INFORMATION
  Report Type: Report from Study
  Country: US (occurrence: US)
  Receive Date: 20190524
  Receipt Date: 20190524
  Transmission Date: 20190711
  Serious: Yes (Hospitalization)
  Sender: FDA-Public Use
  Company Number: PHHY2018US152903

PATIENT
  Age: 40 Year
  Sex: Female
  Weight: 113.9 kg

DRUGS (1)
  1. GILENYA [Suspect]
     Active Substance: FINGOLIMOD HYDROCHLORIDE
     Indication: MULTIPLE SCLEROSIS
     Dosage: 0.5 MG, QD
     Route: 048
     Dates: start: 20170517

REACTIONS (9)
  - Gait disturbance [Unknown]
  - Limb discomfort [Recovered/Resolved]
  - Dizziness [Recovered/Resolved]
  - Limb discomfort [Unknown]
  - Gait disturbance [Recovered/Resolved]
  - Hypoacusis [Recovered/Resolved]
  - Ear pain [Recovered/Resolved]
  - Muscular weakness [Recovered/Resolved]
  - Dizziness [Unknown]

NARRATIVE: CASE EVENT DATE: 20180406
